FAERS Safety Report 9137241 (Version 1)
Quarter: 2013Q1

REPORT INFORMATION
  Report Type: Spontaneous
  Country: US (occurrence: US)
  Receive Date: 20130219
  Receipt Date: 20130219
  Transmission Date: 20140127
  Serious: Yes (Other)
  Sender: FDA-Public Use
  Company Number: US-BRISTOL-MYERS SQUIBB COMPANY-17142811

PATIENT
  Age: 64 Year
  Sex: Female

DRUGS (1)
  1. ORENCIA [Suspect]
     Indication: RHEUMATOID ARTHRITIS
     Dosage: 2ND INFUSON:01OCT2012,?NO OF INFUSION:2
     Route: 042
     Dates: start: 20120915, end: 20121001

REACTIONS (2)
  - Palpitations [Unknown]
  - Swelling face [Unknown]
